FAERS Safety Report 18692875 (Version 1)
Quarter: 2021Q1

REPORT INFORMATION
  Report Type: Other
  Country: US (occurrence: US)
  Receive Date: 20210104
  Receipt Date: 20210104
  Transmission Date: 20210419
  Serious: Yes (Other)
  Sender: FDA-Public Use
  Company Number: US-ROCHE-2742751

PATIENT
  Sex: Male

DRUGS (1)
  1. XOLAIR [Suspect]
     Active Substance: OMALIZUMAB
     Indication: IDIOPATHIC URTICARIA
     Dosage: ONGOING ? YES
     Route: 065
     Dates: start: 20170801

REACTIONS (3)
  - Pneumonia [Recovered/Resolved]
  - Urticaria [Not Recovered/Not Resolved]
  - COVID-19 [Recovered/Resolved]
